FAERS Safety Report 7325045-3 (Version None)
Quarter: 2011Q1

REPORT INFORMATION
  Report Type: 
  Country: None (occurrence: None)
  Receive Date: 20110302
  Receipt Date: 20110222
  Transmission Date: 20110831
  Serious: Yes (Other)
  Sender: FDA-Public Use
  Company Number: US-ASTRAZENECA-2007UW21657

PATIENT
  Age: 550 Month
  Sex: Female

DRUGS (41)
  1. SEROQUEL [Suspect]
     Indication: SLEEP DISORDER
     Dosage: 100 MG - 200 MG
     Route: 048
     Dates: start: 20020201, end: 20070401
  2. SEROQUEL [Suspect]
     Dosage: 100-700 MG
     Route: 048
     Dates: start: 20020226, end: 20050101
  3. SEROQUEL [Suspect]
     Dosage: 100-700 MG
     Route: 048
     Dates: start: 20020226, end: 20050101
  4. SEROQUEL [Suspect]
     Route: 048
     Dates: start: 20061019
  5. SEROQUEL [Suspect]
     Dosage: 50 TO 400 MG
     Route: 048
     Dates: start: 20020802
  6. SEROQUEL [Suspect]
     Route: 048
     Dates: start: 20061019
  7. LIPITOR [Concomitant]
     Dates: start: 20060216
  8. RISPERDAL [Concomitant]
     Indication: SCHIZOPHRENIA
     Dates: start: 20010712
  9. SEROQUEL [Suspect]
     Dosage: 100-700 MG
     Route: 048
     Dates: start: 20020226, end: 20050101
  10. SEROQUEL [Suspect]
     Dosage: 100-700 MG
     Route: 048
     Dates: start: 20020226, end: 20050101
  11. SEROQUEL [Suspect]
     Dosage: 50 TO 400 MG
     Route: 048
     Dates: start: 20020802
  12. SEROQUEL [Suspect]
     Dosage: 50 TO 400 MG
     Route: 048
     Dates: start: 20020802
  13. SEROQUEL [Suspect]
     Dosage: 100 TO 400 MG
     Route: 048
     Dates: start: 20031126
  14. SEROQUEL [Suspect]
     Dosage: 50 TO 400 MG
     Route: 048
     Dates: start: 20020802
  15. SEROQUEL [Suspect]
     Dosage: 100 TO 400 MG
     Route: 048
     Dates: start: 20031126
  16. SEROQUEL [Suspect]
     Dosage: 100 TO 400 MG
     Route: 048
     Dates: start: 20031126
  17. GEODON [Concomitant]
     Dates: start: 20061128
  18. ZETIA [Concomitant]
     Dates: start: 20060216
  19. RISPERDAL [Concomitant]
     Indication: BIPOLAR DISORDER
     Dates: start: 20010712
  20. SEROQUEL [Suspect]
     Indication: BIPOLAR DISORDER
     Dosage: 100 MG - 200 MG
     Route: 048
     Dates: start: 20020201, end: 20070401
  21. SEROQUEL [Suspect]
     Dosage: 100-700 MG
     Route: 048
     Dates: start: 20020226, end: 20050101
  22. SEROQUEL [Suspect]
     Dosage: 50 TO 400 MG
     Route: 048
     Dates: start: 20020802
  23. SEROQUEL [Suspect]
     Dosage: 100 TO 400 MG
     Route: 048
     Dates: start: 20031126
  24. SEROQUEL [Suspect]
     Route: 048
     Dates: start: 20061019
  25. NEXIUM [Concomitant]
     Dates: start: 20060216
  26. SEROQUEL [Suspect]
     Indication: ANXIETY
     Dosage: 100 MG - 200 MG
     Route: 048
     Dates: start: 20020201, end: 20070401
  27. SEROQUEL [Suspect]
     Indication: SCHIZOPHRENIA
     Dosage: 100 MG - 200 MG
     Route: 048
     Dates: start: 20020201, end: 20070401
  28. PROZAC [Concomitant]
     Dates: start: 20061128
  29. SYNTHROID [Concomitant]
     Dates: start: 20060216
  30. PANTOPRAZOLE [Concomitant]
     Dates: start: 20061017
  31. FLUOXETINE HCL [Concomitant]
     Dates: start: 20061019
  32. SEROQUEL [Suspect]
     Dosage: 100 TO 400 MG
     Route: 048
     Dates: start: 20031126
  33. SEROQUEL [Suspect]
     Route: 048
     Dates: start: 20061019
  34. RISPERDAL [Concomitant]
     Indication: DEPRESSION
     Dates: start: 20010712
  35. PLAVIX [Concomitant]
     Dates: start: 20091214
  36. SEROQUEL [Suspect]
     Indication: DEPRESSION
     Dosage: 100 MG - 200 MG
     Route: 048
     Dates: start: 20020201, end: 20070401
  37. SEROQUEL [Suspect]
     Route: 048
     Dates: start: 20061019
  38. PROZAC [Concomitant]
     Dates: start: 20031126
  39. ABILIFY [Concomitant]
     Dates: start: 20070828
  40. METOPROLOL TART [Concomitant]
     Dates: start: 20061019
  41. PREVACID [Concomitant]
     Dates: start: 20091214

REACTIONS (9)
  - BLOOD CHOLESTEROL INCREASED [None]
  - HYPERCHOLESTEROLAEMIA [None]
  - DIABETIC KETOACIDOSIS [None]
  - DIABETIC COMPLICATION [None]
  - HYPERLIPIDAEMIA [None]
  - BLOOD TRIGLYCERIDES INCREASED [None]
  - CHOLELITHIASIS [None]
  - TYPE 2 DIABETES MELLITUS [None]
  - PANCREATITIS [None]
